FAERS Safety Report 7153860-8 (Version None)
Quarter: 2010Q4

REPORT INFORMATION
  Report Type: 
  Country: None (occurrence: None)
  Receive Date: 20101213
  Receipt Date: 20101008
  Transmission Date: 20110411
  Serious: No
  Sender: FDA-Public Use
  Company Number: US-ABBOTT-10P-163-0677123-00

PATIENT
  Sex: Female
  Weight: 63.56 kg

DRUGS (1)
  1. MERIDIA [Suspect]
     Indication: WEIGHT DECREASED
     Dosage: 15MG PO EVERY DAY, TAKEN SPORADICALLY
     Route: 048
     Dates: start: 20080101

REACTIONS (1)
  - FEELING JITTERY [None]
